FAERS Safety Report 15654104 (Version 1)
Quarter: 2018Q4

REPORT INFORMATION
  Report Type: Spontaneous
  Country: US (occurrence: US)
  Receive Date: 20181125
  Receipt Date: 20181125
  Transmission Date: 20190205
  Serious: Yes (Other)
  Sender: FDA-Public Use
  Company Number: None

PATIENT
  Age: 48 Year
  Sex: Female
  Weight: 105.75 kg

DRUGS (1)
  1. AIMOVIG [Suspect]
     Active Substance: ERENUMAB-AOOE
     Indication: MIGRAINE
     Dosage: ?          QUANTITY:1 INJECTION(S);OTHER FREQUENCY:ONCE A MONTH;?
     Route: 058
     Dates: start: 20180901, end: 20181101

REACTIONS (18)
  - Paraesthesia [None]
  - Decreased appetite [None]
  - Trichorrhexis [None]
  - Disturbance in attention [None]
  - Insomnia [None]
  - Ventricular extrasystoles [None]
  - Abdominal distension [None]
  - Dysgeusia [None]
  - Anxiety [None]
  - Asthenia [None]
  - Constipation [None]
  - Flatulence [None]
  - Restlessness [None]
  - Palpitations [None]
  - Feeling abnormal [None]
  - Weight increased [None]
  - Dysmenorrhoea [None]
  - Exercise tolerance decreased [None]

NARRATIVE: CASE EVENT DATE: 20180901
